FAERS Safety Report 8178928-9 (Version None)
Quarter: 2012Q1

REPORT INFORMATION
  Report Type: 
  Country: None (occurrence: None)
  Receive Date: 20120302
  Receipt Date: 20120222
  Transmission Date: 20120608
  Serious: No
  Sender: FDA-Public Use
  Company Number: US-BIOGENIDEC-2012BI006927

PATIENT
  Sex: Female

DRUGS (4)
  1. AVONEX [Concomitant]
     Indication: MULTIPLE SCLEROSIS
     Route: 030
     Dates: start: 20080321
  2. AVONEX [Concomitant]
     Route: 030
  3. TYSABRI [Suspect]
     Indication: MULTIPLE SCLEROSIS
     Route: 042
     Dates: start: 20110617
  4. AVONEX [Concomitant]
     Route: 030
     Dates: start: 20000101

REACTIONS (7)
  - MEMORY IMPAIRMENT [None]
  - ASTHENIA [None]
  - SENSORY DISTURBANCE [None]
  - MUSCLE SPASMS [None]
  - CHOKING [None]
  - SPEECH DISORDER [None]
  - SOMNOLENCE [None]
